FAERS Safety Report 6238236-X (Version None)
Quarter: 2009Q2

REPORT INFORMATION
  Report Type: 
  Country: None (occurrence: None)
  Receive Date: 20090617
  Receipt Date: 20090617
  Transmission Date: 20091009
  Serious: Yes (Life-Threatening, Hospitalization, Disabling)
  Sender: FDA-Public Use
  Company Number: None

PATIENT
  Age: 79 Year
  Weight: 62.3 kg

DRUGS (1)
  1. TAXOL [Suspect]
     Indication: NON-SMALL CELL LUNG CANCER
     Dosage: IV AT LEAST 3 HOURS INFUSION
     Route: 042

REACTIONS (5)
  - CARDIO-RESPIRATORY ARREST [None]
  - COUGH [None]
  - FLUSHING [None]
  - PO2 DECREASED [None]
  - THROAT IRRITATION [None]
